FAERS Safety Report 5553813-7 (Version None)
Quarter: 2007Q4

REPORT INFORMATION
  Report Type: 
  Country: None (occurrence: None)
  Receive Date: 20071213
  Receipt Date: 20071206
  Transmission Date: 20080405
  Serious: Yes (Hospitalization)
  Sender: FDA-Public Use
  Company Number: US-ELI_LILLY_AND_COMPANY-US200710006413

PATIENT
  Sex: Male
  Weight: 108.39 kg

DRUGS (8)
  1. BYETTA [Suspect]
     Dosage: 10 UG, 2/D
     Route: 058
     Dates: end: 20070820
  2. NOVOLOG [Concomitant]
     Indication: DIABETES MELLITUS
     Dosage: 15 U, EACH MORNING
     Route: 058
     Dates: end: 20070101
  3. NOVOLOG [Concomitant]
     Dosage: 20 U, EACH EVENING
     Route: 058
     Dates: end: 20070101
  4. NOVOLOG [Concomitant]
     Dosage: UNK, AS NEEDED
     Route: 058
     Dates: start: 20070101
  5. LANTUS [Concomitant]
     Indication: DIABETES MELLITUS
     Dosage: 80 U, EACH MORNING
     Route: 058
  6. LANTUS [Concomitant]
     Dosage: 70 U, EACH EVENING
     Route: 058
  7. AVANDIA [Concomitant]
     Indication: DIABETES MELLITUS
     Dosage: UNK, UNKNOWN
  8. ACTOS [Concomitant]
     Indication: DIABETES MELLITUS
     Dosage: UNK, UNKNOWN

REACTIONS (4)
  - APPENDIX DISORDER [None]
  - INCISION SITE INFECTION [None]
  - WEIGHT DECREASED [None]
  - WEIGHT INCREASED [None]
